FAERS Safety Report 8887656 (Version 1)
Quarter: 2012Q4

REPORT INFORMATION
  Report Type: 
  Country: US (occurrence: US)
  Receive Date: 20121106
  Receipt Date: 20121106
  Transmission Date: 20130627
  Serious: Yes (Hospitalization, Disabling, Other)
  Sender: FDA-Public Use
  Company Number: US-009507513-0704USA05726

PATIENT

DRUGS (6)
  1. FOSAMAX [Suspect]
     Indication: OSTEOPOROSIS
     Dosage: 70 mg, QW
     Route: 048
     Dates: start: 20020301, end: 20060102
  2. VERAPAMIL [Concomitant]
     Indication: ESSENTIAL HYPERTENSION
     Dosage: 240 mg, qd
     Dates: start: 2001
  3. MOBIC [Concomitant]
     Indication: ARTHRITIS
     Dosage: 7.5 mg, qd
     Dates: start: 2002
  4. ATARAX (ALPRAZOLAM) [Concomitant]
     Indication: BREAST CANCER
     Dates: start: 2001, end: 2005
  5. MK-0168 [Concomitant]
     Dosage: 1 DF, QM
     Dates: start: 2001, end: 2005
  6. TAMOXIFEN CITRATE [Concomitant]
     Indication: BREAST CANCER
     Dates: start: 2001, end: 2005

REACTIONS (34)
  - Large intestine perforation [Unknown]
  - Osteonecrosis of jaw [Unknown]
  - Wound infection [Unknown]
  - Anaemia [Unknown]
  - Renal failure [Unknown]
  - Hypokalaemia [Unknown]
  - Malnutrition [Unknown]
  - Gastric ulcer [Unknown]
  - Gastritis [Unknown]
  - Impaired gastric emptying [Unknown]
  - Migraine [Unknown]
  - Basal cell carcinoma [Unknown]
  - Sjogren^s syndrome [Unknown]
  - Cataract [Unknown]
  - Herpes zoster [Unknown]
  - Pain in extremity [Unknown]
  - Dry mouth [Unknown]
  - Abscess [Unknown]
  - Pneumonia [Unknown]
  - Gastroenteritis [Unknown]
  - Renal failure acute [Recovered/Resolved]
  - Atrial fibrillation [Recovered/Resolved]
  - Diastolic dysfunction [Unknown]
  - Dehydration [Recovering/Resolving]
  - Macular degeneration [Unknown]
  - Retinal detachment [Recovered/Resolved]
  - Neoplasm malignant [Unknown]
  - Arthropathy [Unknown]
  - Fall [Unknown]
  - Eye disorder [Unknown]
  - Cerumen impaction [Unknown]
  - Skin cancer [Unknown]
  - Wheezing [Unknown]
  - Hypogammaglobulinaemia [Unknown]
